FAERS Safety Report 7554526-2 (Version None)
Quarter: 2011Q2

REPORT INFORMATION
  Report Type: 
  Country: None (occurrence: None)
  Receive Date: 20110617
  Receipt Date: 20110610
  Transmission Date: 20111010
  Serious: Yes (Hospitalization)
  Sender: FDA-Public Use
  Company Number: B0726592A

PATIENT
  Age: 72 Year
  Sex: Female

DRUGS (2)
  1. AVANDAMET [Suspect]
     Route: 048
     Dates: start: 20010801, end: 20070701
  2. AVANDIA [Suspect]
     Route: 048
     Dates: start: 20030729, end: 20060125

REACTIONS (11)
  - AORTIC STENOSIS [None]
  - CEREBROVASCULAR ACCIDENT [None]
  - CARDIAC FAILURE CONGESTIVE [None]
  - AORTIC VALVE REPLACEMENT [None]
  - CORONARY ARTERY BYPASS [None]
  - TRANSIENT ISCHAEMIC ATTACK [None]
  - NERVE INJURY [None]
  - AORTIC VALVE INCOMPETENCE [None]
  - MICTURITION DISORDER [None]
  - CORONARY ARTERY DISEASE [None]
  - RENAL FAILURE [None]
